FAERS Safety Report 22391494 (Version 2)
Quarter: 2023Q2

REPORT INFORMATION
  Report Type: Spontaneous
  Country: US (occurrence: US)
  Receive Date: 20230601
  Receipt Date: 20230613
  Transmission Date: 20230721
  Serious: Yes (Life-Threatening, Hospitalization)
  Sender: FDA-Public Use
  Company Number: US-TEVA-2023-US-2891112

PATIENT
  Sex: Male

DRUGS (2)
  1. HYDROXYCHLOROQUINE [Suspect]
     Active Substance: HYDROXYCHLOROQUINE
     Indication: Accidental overdose
     Dosage: 5 G
     Route: 048
  2. INSULIN NOS [Concomitant]
     Active Substance: INSULIN NOS
     Indication: Type 1 diabetes mellitus
     Dosage: PUMP
     Route: 065

REACTIONS (6)
  - Lethargy [Unknown]
  - Hypotension [Unknown]
  - Electrocardiogram QRS complex prolonged [Recovered/Resolved]
  - Hypokalaemia [Unknown]
  - Accidental overdose [Unknown]
  - Wrong product administered [Unknown]
